FAERS Safety Report 7415152-9 (Version None)
Quarter: 2011Q2

REPORT INFORMATION
  Report Type: 
  Country: None (occurrence: None)
  Receive Date: 20110414
  Receipt Date: 20110404
  Transmission Date: 20111010
  Serious: Yes (Other)
  Sender: FDA-Public Use
  Company Number: PHHY2011NZ29374

PATIENT
  Sex: Female

DRUGS (1)
  1. VOLTAREN [Suspect]
     Dosage: 50MG OR 75MG (UNSURE)
     Route: 048
     Dates: end: 20110329

REACTIONS (7)
  - EXCESSIVE EYE BLINKING [None]
  - FEELING ABNORMAL [None]
  - CHILLS [None]
  - RASH [None]
  - BACK PAIN [None]
  - FATIGUE [None]
  - TREMOR [None]
